FAERS Safety Report 23790865 (Version 1)
Quarter: 2024Q2

REPORT INFORMATION
  Report Type: Spontaneous
  Country: JP (occurrence: JP)
  Receive Date: 20240427
  Receipt Date: 20240427
  Transmission Date: 20240716
  Serious: Yes (Hospitalization)
  Sender: FDA-Public Use
  Company Number: JP-STRIDES ARCOLAB LIMITED-2024SP004882

PATIENT
  Age: 2 Year
  Sex: Male

DRUGS (19)
  1. ETOPOSIDE [Suspect]
     Active Substance: ETOPOSIDE
     Indication: Acute myeloid leukaemia
     Dosage: 150 MILLIGRAM/SQ. METER, QD,CYCLICAL (PER DAY ON DAYS?1-5) (FIRST INDUCTION THERAPY)
     Route: 065
  2. ETOPOSIDE [Suspect]
     Active Substance: ETOPOSIDE
     Indication: Acute megakaryocytic leukaemia
     Dosage: 100 MILLIGRAM/SQ. METER, QD, CYCLICAL (PER DAY ON DAYS?1?5) (FIRST COURSE OF CONSOLIDATION THERAPY)
     Route: 065
  3. ETOPOSIDE [Suspect]
     Active Substance: ETOPOSIDE
     Dosage: 100 MILLIGRAM/SQ. METER, QD, CYCLICAL (PER DAY ON DAYS?1?5) (THIRD COURSE OF CONSOLIDATION THERAPY)
     Route: 065
  4. ETOPOSIDE [Suspect]
     Active Substance: ETOPOSIDE
     Dosage: 150 MG/M2, QD [VP-16] (INDUCTION THERAPY)
     Route: 065
  5. METHOTREXATE [Suspect]
     Active Substance: METHOTREXATE
     Indication: Acute myeloid leukaemia
     Dosage: 10 MILLIGRAM, SINGLE (INJECTION)
     Route: 037
  6. CYTARABINE [Suspect]
     Active Substance: CYTARABINE
     Indication: Acute myeloid leukaemia
     Dosage: 200 MILLIGRAM/SQ. METER, BID,CYCLICAL (TWICE A DAY ON DAYS?6?12) (FIRST INDUCTION THERAPY)
     Route: 042
  7. CYTARABINE [Suspect]
     Active Substance: CYTARABINE
     Indication: Acute megakaryocytic leukaemia
     Dosage: 3 G/M2, BID,3 G/M2, CYCLICAL (TWICE A DAY ON DAYS?1-3,FIRST COURSE OF CONSOLIDATION THERAPY)
     Route: 042
  8. CYTARABINE [Suspect]
     Active Substance: CYTARABINE
     Dosage: 2 G/M2, BID, CYCLICAL, ON DAY 1-5 (SECOND COURSE OF CONSOLIDATION THERAPY)
     Route: 042
  9. CYTARABINE [Suspect]
     Active Substance: CYTARABINE
     Dosage: 3 G/M2, BID,CYCLICAL  ON DAY 1-3, HIGH DOSE (THIRD COURSE OF CONSOLIDATION THERAPY)
     Route: 042
  10. CYTARABINE [Suspect]
     Active Substance: CYTARABINE
     Dosage: 2 G/M2, BID, CYCLICAL, ON DAYS?1-5, ( FOURTH COURSE OF CONSOLIDATION THERAPY)
     Route: 042
  11. CYTARABINE [Suspect]
     Active Substance: CYTARABINE
     Dosage: 200 MG/M2, QD (INDUCTION THERAPY)
     Route: 042
  12. CYTARABINE [Suspect]
     Active Substance: CYTARABINE
     Dosage: 25 MILLIGRAM, SINGLE (INJECTION)
     Route: 037
  13. MITOXANTRONE [Suspect]
     Active Substance: MITOXANTRONE HYDROCHLORIDE
     Indication: Acute myeloid leukaemia
     Dosage: 5 MILLIGRAM/SQ. METER, QD, CYCLICAL  (ON DAYS?6-10, (FIRST INDUCTION THERAPY)
     Route: 065
  14. MITOXANTRONE [Suspect]
     Active Substance: MITOXANTRONE HYDROCHLORIDE
     Indication: Acute myeloid leukaemia
     Dosage: 5 MILLIGRAM/SQ. METER, QD, CYCLICAL (ON DAYS?1 AND 2, SECOND COURSE OF CONSOLIDATION THERAPY)
     Route: 065
  15. MITOXANTRONE [Suspect]
     Active Substance: MITOXANTRONE HYDROCHLORIDE
     Indication: Acute megakaryocytic leukaemia
     Dosage: 5 MILLIGRAM/SQ. METER, QD, CYCLICAL ,(DAYS?1 AND 2, FOURTH COURSE OF CONSOLIDATION THERAPY)
     Route: 065
  16. HYDROCORTISONE [Suspect]
     Active Substance: HYDROCORTISONE
     Indication: Acute myeloid leukaemia
     Dosage: 20 MILLIGRAM, SINGLE
     Route: 037
  17. IDARUBICIN [Suspect]
     Active Substance: IDARUBICIN
     Indication: Acute myeloid leukaemia
     Dosage: 10 MILLIGRAM/SQ. METER, CYCLICAL (ON DAY?1 (THIRD COURSE OF CONSOLIDATION THERAPY)
     Route: 065
  18. IDARUBICIN [Suspect]
     Active Substance: IDARUBICIN
     Indication: Acute megakaryocytic leukaemia
     Dosage: 10 MILLIGRAM/SQ. METER, CYCLICAL, ON DAY 1 (THIRD COURSE OF CONSOLIDATION THERAPY)
     Route: 065
  19. Immunoglobulin [Concomitant]
     Indication: Product used for unknown indication
     Dosage: UNK
     Route: 065

REACTIONS (2)
  - Acute monocytic leukaemia [Recovered/Resolved]
  - Gastroenteritis adenovirus [Recovered/Resolved]
